FAERS Safety Report 9692694 (Version 2)
Quarter: 2014Q1

REPORT INFORMATION
  Report Type: Report from Study
  Country: DE (occurrence: DE)
  Receive Date: 20131118
  Receipt Date: 20140313
  Transmission Date: 20141002
  Serious: Yes (Other)
  Sender: FDA-Public Use
  Company Number: PHHY2013DE130950

PATIENT
  Sex: Female

DRUGS (1)
  1. EXTAVIA [Suspect]
     Indication: MULTIPLE SCLEROSIS
     Dosage: UNK UKN, QOD
     Route: 058
     Dates: start: 20121025, end: 20130601

REACTIONS (2)
  - Wound [Recovered/Resolved]
  - Multiple sclerosis relapse [Recovered/Resolved]
